FAERS Safety Report 23841361 (Version 2)
Quarter: 2024Q3

REPORT INFORMATION
  Report Type: Spontaneous
  Country: US (occurrence: US)
  Receive Date: 20240510
  Receipt Date: 20240718
  Transmission Date: 20241016
  Serious: Yes (Other)
  Sender: CELLTRION
  Company Number: US-CELLTRION INC.-2024US010564

PATIENT

DRUGS (2)
  1. INFLECTRA [Suspect]
     Active Substance: INFLIXIMAB-DYYB
     Indication: Product used for unknown indication
     Dosage: EVERY 2 WEEKS (2/2 REMAINING; WEEK OF 4/14/2024)
     Route: 042
     Dates: start: 20240414
  2. INFLECTRA [Suspect]
     Active Substance: INFLIXIMAB-DYYB
     Dosage: EVERY 4 WEEKS (MAINTENANCE DOSE; WEEK OF 4/14/2024)
     Route: 042
     Dates: start: 20240414

REACTIONS (1)
  - Juvenile idiopathic arthritis [Unknown]
